FAERS Safety Report 14318863 (Version 2)
Quarter: 2018Q1

REPORT INFORMATION
  Report Type: Report from Study
  Country: GB (occurrence: GB)
  Receive Date: 20171222
  Receipt Date: 20180109
  Transmission Date: 20180509
  Serious: Yes (Other)
  Sender: FDA-Public Use
  Company Number: GB-IPSEN BIOPHARMACEUTICALS, INC.-2017-12808

PATIENT
  Age: 73 Year
  Sex: Female

DRUGS (1)
  1. SOMATULINE AUTOGEL 120MG [Suspect]
     Active Substance: LANREOTIDE ACETATE
     Indication: NEUROENDOCRINE TUMOUR
     Dosage: 120 MG
     Route: 058
     Dates: start: 20170802, end: 20171215

REACTIONS (7)
  - Skin mass [Recovering/Resolving]
  - Skin ulcer [Recovering/Resolving]
  - Discomfort [Unknown]
  - Viral infection [Recovered/Resolved]
  - Product use issue [Unknown]
  - Secretion discharge [Unknown]
  - Scar [Unknown]

NARRATIVE: CASE EVENT DATE: 2017
